FAERS Safety Report 21688150 (Version 2)
Quarter: 2023Q1

REPORT INFORMATION
  Report Type: Spontaneous
  Country: JP (occurrence: JP)
  Receive Date: 20221206
  Receipt Date: 20230112
  Transmission Date: 20230418
  Serious: Yes (Other)
  Sender: FDA-Public Use
  Company Number: JP-OTSUKA-2022_053516

PATIENT
  Age: 6 Decade
  Sex: Male

DRUGS (1)
  1. REXULTI [Suspect]
     Active Substance: BREXPIPRAZOLE
     Indication: Product used for unknown indication
     Dosage: DAILY DOSE: UNKNOWN
     Route: 048

REACTIONS (2)
  - Psychiatric decompensation [Unknown]
  - Dyskinesia [Unknown]
